FAERS Safety Report 21303234 (Version 1)
Quarter: 2022Q3

REPORT INFORMATION
  Report Type: Spontaneous
  Country: US (occurrence: None)
  Receive Date: 20220907
  Receipt Date: 20220907
  Transmission Date: 20221026
  Serious: Yes (Other)
  Sender: FDA-Public Use
  Company Number: None

PATIENT
  Age: 86 Year
  Sex: Male
  Weight: 68.4 kg

DRUGS (10)
  1. MOLNUPIRAVIR [Suspect]
     Active Substance: MOLNUPIRAVIR
     Indication: COVID-19
     Dosage: FREQUENCY : TWICE A DAY;?
     Route: 048
     Dates: start: 20220906, end: 20220907
  2. ASPIRIN [Concomitant]
     Active Substance: ASPIRIN
     Dates: start: 20120101
  3. LOSARTAN [Concomitant]
     Active Substance: LOSARTAN
     Dates: start: 20120101
  4. COREG [Concomitant]
     Active Substance: CARVEDILOL
     Dates: start: 20120101
  5. Cilostazul [Concomitant]
     Dates: start: 20120101
  6. ROSUVASTATIN [Concomitant]
     Active Substance: ROSUVASTATIN
     Dates: start: 20120101
  7. Nitroglycerine, PRN [Concomitant]
     Dates: start: 20120101
  8. CALCIUM [Concomitant]
     Active Substance: CALCIUM
     Dates: start: 20120101
  9. VITAMIN D3 [Concomitant]
     Active Substance: CHOLECALCIFEROL
     Dates: start: 20120101
  10. VITAMINS [Concomitant]
     Active Substance: VITAMINS
     Dates: start: 20120101

REACTIONS (1)
  - Heart rate increased [None]

NARRATIVE: CASE EVENT DATE: 20220906
